FAERS Safety Report 6541531-8 (Version None)
Quarter: 2010Q1

REPORT INFORMATION
  Report Type: 
  Country: None (occurrence: None)
  Receive Date: 20100119
  Receipt Date: 20100112
  Transmission Date: 20100710
  Serious: Yes (Hospitalization)
  Sender: FDA-Public Use
  Company Number: AR-SP-2009-04841

PATIENT
  Age: 56 Year
  Sex: Male

DRUGS (2)
  1. IMMUCYST [Suspect]
     Indication: DRUG USE FOR UNKNOWN INDICATION
     Dosage: NOT REPORTED
     Route: 043
  2. IMMUCYST [Suspect]
     Dosage: NOT REPORTED
     Route: 043

REACTIONS (4)
  - BACTERAEMIA [None]
  - BLADDER IRRITATION [None]
  - HEPATIC ENZYME ABNORMAL [None]
  - PYREXIA [None]
